FAERS Safety Report 5978154-5 (Version None)
Quarter: 2008Q4

REPORT INFORMATION
  Report Type: 
  Country: None (occurrence: None)
  Receive Date: 20081204
  Receipt Date: 20081126
  Transmission Date: 20090506
  Serious: No
  Sender: FDA-Public Use
  Company Number: JP-JNJFOC-20080206538

PATIENT
  Sex: Female
  Weight: 64.9 kg

DRUGS (11)
  1. RISPERDAL [Suspect]
     Route: 048
  2. RISPERDAL [Suspect]
     Route: 048
  3. RISPERDAL [Suspect]
     Indication: SCHIZOPHRENIA, PARANOID TYPE
     Route: 048
  4. BENZALIN [Suspect]
     Indication: DRUG USE FOR UNKNOWN INDICATION
     Route: 048
  5. RISPERDAL [Concomitant]
  6. RISPERDAL [Concomitant]
  7. RISPERDAL [Concomitant]
  8. RISPERDAL [Concomitant]
  9. RISPERDAL [Concomitant]
  10. RISPERDAL [Concomitant]
  11. MAGMITT [Concomitant]
     Indication: CONSTIPATION
     Route: 048

REACTIONS (4)
  - AKATHISIA [None]
  - BLOOD URINE PRESENT [None]
  - CONSTIPATION [None]
  - WHITE BLOOD CELL COUNT DECREASED [None]
